FAERS Safety Report 9289019 (Version 1)
Quarter: 2013Q2

REPORT INFORMATION
  Report Type: Spontaneous
  Country: US (occurrence: None)
  Receive Date: 20130509
  Receipt Date: 20130509
  Transmission Date: 20140414
  Serious: Yes (Other)
  Sender: FDA-Public Use
  Company Number: 1702694

PATIENT
  Age: 35 Year
  Sex: Female

DRUGS (8)
  1. METHYLPREDNISOLONE [Suspect]
     Indication: MYASTHENIA GRAVIS CRISIS
  2. ALBUTEROL [Concomitant]
  3. FAMOTIDINE [Concomitant]
  4. FENTANYL [Concomitant]
  5. HEPARIN [Concomitant]
  6. MYCOPHENOLATE MOFETIL [Concomitant]
  7. (PROPOFOL) [Concomitant]
  8. PYRIDOSTIGMINE BROMIDE [Concomitant]

REACTIONS (2)
  - Macroglossia [None]
  - Laryngeal oedema [None]
